FAERS Safety Report 8951594 (Version 1)
Quarter: 2012Q4

REPORT INFORMATION
  Report Type: 
  Country: DE (occurrence: DE)
  Receive Date: 20121204
  Receipt Date: 20121204
  Transmission Date: 20130627
  Serious: Yes (Other)
  Sender: FDA-Public Use
  Company Number: DE-MYLANLABS-2012S1024265

PATIENT
  Sex: Female
  Weight: 60 kg

DRUGS (1)
  1. ALENDRONAT [Suspect]
     Indication: OSTEOPOROSIS

REACTIONS (1)
  - Leukocytoclastic vasculitis [Recovered/Resolved]
